FAERS Safety Report 13247193 (Version 1)
Quarter: 2017Q1

REPORT INFORMATION
  Report Type: Spontaneous
  Country: IE (occurrence: IE)
  Receive Date: 20170217
  Receipt Date: 20170217
  Transmission Date: 20170428
  Serious: Yes (Other)
  Sender: FDA-Public Use
  Company Number: IE-PFIZER INC-2017067208

PATIENT
  Sex: Female

DRUGS (1)
  1. BOSULIF [Suspect]
     Active Substance: BOSUTINIB MONOHYDRATE
     Dosage: 200 MG, DAILY (2X 100MG TABS PER DAY)
     Dates: start: 201602, end: 201701

REACTIONS (3)
  - Silent myocardial infarction [Unknown]
  - Lung infiltration [Unknown]
  - Rash [Unknown]
